FAERS Safety Report 23649814 (Version 1)
Quarter: 2024Q1

REPORT INFORMATION
  Report Type: Spontaneous
  Country: HR (occurrence: HR)
  Receive Date: 20240319
  Receipt Date: 20240319
  Transmission Date: 20240409
  Serious: Yes (Hospitalization, Other)
  Sender: FDA-Public Use
  Company Number: HR-BoehringerIngelheim-2024-BI-015279

PATIENT
  Age: 62 Year
  Sex: Male

DRUGS (5)
  1. JARDIANCE [Suspect]
     Active Substance: EMPAGLIFLOZIN
     Indication: Diabetes mellitus
     Dosage: DURING MORNING
     Dates: start: 202310
  2. EUTHYROX [Concomitant]
     Active Substance: LEVOTHYROXINE SODIUM
  3. RAMIPRIL [Concomitant]
     Active Substance: RAMIPRIL
  4. ROSUVASTATIN CALCIUM [Concomitant]
     Active Substance: ROSUVASTATIN CALCIUM
  5. TAMSULOSIN [Concomitant]
     Active Substance: TAMSULOSIN

REACTIONS (9)
  - Type 1 diabetes mellitus [Recovering/Resolving]
  - Hypoglycaemia [Unknown]
  - Hunger [Unknown]
  - Constipation [Unknown]
  - Dysuria [Recovering/Resolving]
  - Urine flow decreased [Unknown]
  - Urinary retention [Recovering/Resolving]
  - Catheter placement [Unknown]
  - Off label use [Unknown]

NARRATIVE: CASE EVENT DATE: 20240305
